FAERS Safety Report 9753271 (Version 2)
Quarter: 2014Q1

REPORT INFORMATION
  Report Type: Spontaneous
  Country: JO (occurrence: None)
  Receive Date: 20131211
  Receipt Date: 20140218
  Transmission Date: 20141002
  Serious: Yes (Death, Hospitalization)
  Sender: FDA-Public Use
  Company Number: 2013AP010187

PATIENT
  Age: 40 Year
  Sex: Female

DRUGS (5)
  1. LAMOTRIGINE TABLETS [Suspect]
  2. QUETIAPINE FUMARATE [Suspect]
  3. VENLAFAXINE [Suspect]
  4. MIRTAZAPINE [Suspect]
  5. ALPRAZOLAM [Concomitant]

REACTIONS (7)
  - Cellulitis [None]
  - Oral candidiasis [None]
  - Febrile neutropenia [None]
  - Agranulocytosis [None]
  - Multi-organ failure [None]
  - Septic shock [None]
  - Cellulitis orbital [None]
